FAERS Safety Report 18750403 (Version 1)
Quarter: 2021Q1

REPORT INFORMATION
  Report Type: Spontaneous
  Country: CN (occurrence: CN)
  Receive Date: 20210118
  Receipt Date: 20210118
  Transmission Date: 20210419
  Serious: Yes (Hospitalization, Other)
  Sender: FDA-Public Use
  Company Number: CN-LUPIN PHARMACEUTICALS INC.-2021-00167

PATIENT
  Age: 37 Year
  Sex: Male

DRUGS (7)
  1. VORICONAZOLE. [Suspect]
     Active Substance: VORICONAZOLE
     Dosage: 175 MILLIGRAM, BID ON DAY 77
     Route: 048
  2. METHYLPREDNISOLONE TABLETS, 8 MG [Suspect]
     Active Substance: METHYLPREDNISOLONE
     Indication: IMMUNOSUPPRESSANT DRUG THERAPY
     Dosage: 1 DOSAGE FORM, QD
     Route: 048
  3. VORICONAZOLE. [Suspect]
     Active Substance: VORICONAZOLE
     Indication: CEREBRAL ASPERGILLOSIS
     Dosage: 200 MILLIGRAM, BID
     Route: 048
  4. VORICONAZOLE. [Suspect]
     Active Substance: VORICONAZOLE
     Dosage: UNK UNK, BID (60 TO 150 MG) ON DAY 60
     Route: 048
  5. VORICONAZOLE. [Suspect]
     Active Substance: VORICONAZOLE
     Dosage: 300 MILLIGRAM, BID ON DAY 9
     Route: 048
  6. VORICONAZOLE. [Suspect]
     Active Substance: VORICONAZOLE
     Dosage: 200 MILLIGRAM, BID ON DAY 37
     Route: 048
  7. MYCOPHENOLATE SODIUM [Suspect]
     Active Substance: MYCOPHENOLATE SODIUM
     Indication: IMMUNOSUPPRESSANT DRUG THERAPY
     Dosage: 1 DOSAGE FORM, BID
     Route: 048

REACTIONS (6)
  - Cerebral aspergillosis [Recovered/Resolved]
  - Cerebral infarction [Recovered/Resolved]
  - Urinary bladder rupture [Recovered/Resolved]
  - Cystitis haemorrhagic [Recovered/Resolved]
  - Hemiparesis [Recovered/Resolved]
  - Hypovolaemia [Recovered/Resolved]
